FAERS Safety Report 13455573 (Version 1)
Quarter: 2017Q2

REPORT INFORMATION
  Report Type: Spontaneous
  Country: US (occurrence: US)
  Receive Date: 20170418
  Receipt Date: 20170418
  Transmission Date: 20170830
  Serious: No
  Sender: FDA-Public Use
  Company Number: None

PATIENT
  Age: 70 Year
  Sex: Female
  Weight: 58.05 kg

DRUGS (12)
  1. POTASSIUM GLUCONATE [Concomitant]
     Active Substance: POTASSIUM GLUCONATE
  2. BUTRANS [Concomitant]
     Active Substance: BUPRENORPHINE
  3. V-A [Concomitant]
  4. V-B COMPLE [Concomitant]
  5. SELENIUM [Concomitant]
     Active Substance: SELENIUM
  6. FOLIC ACID. [Concomitant]
     Active Substance: FOLIC ACID
  7. ZINC. [Concomitant]
     Active Substance: ZINC
  8. LEVOTHYROXINE. [Concomitant]
     Active Substance: LEVOTHYROXINE
  9. V-D [Concomitant]
  10. MAGNESIUM [Concomitant]
     Active Substance: MAGNESIUM
  11. CITRACAL CALCIUM WITH D3 [Concomitant]
  12. TRAMADOL 50 MG [Suspect]
     Active Substance: TRAMADOL
     Indication: PSORIATIC ARTHROPATHY
     Dosage: ?          QUANTITY:60 TABLET(S);?
     Route: 048
     Dates: start: 20170407, end: 20170412

REACTIONS (7)
  - Eyelid oedema [None]
  - Dry mouth [None]
  - Eyelid pain [None]
  - Drug ineffective [None]
  - Erythema [None]
  - Dysgeusia [None]
  - Pain [None]

NARRATIVE: CASE EVENT DATE: 20170412
